FAERS Safety Report 11915963 (Version 1)
Quarter: 2016Q1

REPORT INFORMATION
  Report Type: Report from Study
  Country: BR (occurrence: BR)
  Receive Date: 20160114
  Receipt Date: 20160114
  Transmission Date: 20160526
  Serious: Yes (Other)
  Sender: FDA-Public Use
  Company Number: PHHY2016BR003331

PATIENT
  Age: 51 Year
  Sex: Female
  Weight: 95 kg

DRUGS (1)
  1. SANDOSTATIN LAR DEPOT [Suspect]
     Active Substance: OCTREOTIDE ACETATE
     Indication: NEUROENDOCRINE TUMOUR
     Dosage: 30 MG, UNK
     Route: 030
     Dates: start: 2012

REACTIONS (9)
  - Pain [Unknown]
  - Injection site inflammation [Unknown]
  - Injection site swelling [Unknown]
  - Inflammation [Unknown]
  - Injection site induration [Unknown]
  - Injection site pain [Unknown]
  - Decreased immune responsiveness [Unknown]
  - Malaise [Unknown]
  - Injection site erythema [Unknown]

NARRATIVE: CASE EVENT DATE: 201512
